FAERS Safety Report 11615532 (Version 1)
Quarter: 2015Q4

REPORT INFORMATION
  Report Type: Spontaneous
  Country: US (occurrence: US)
  Receive Date: 20151009
  Receipt Date: 20151009
  Transmission Date: 20160304
  Serious: Yes (Other)
  Sender: FDA-Public Use
  Company Number: US-BIOGENIDEC-2015BI135518

PATIENT
  Sex: Female

DRUGS (4)
  1. AVONEX [Suspect]
     Active Substance: INTERFERON BETA-1A
     Indication: RELAPSING-REMITTING MULTIPLE SCLEROSIS
  2. BACLOFEN. [Concomitant]
     Active Substance: BACLOFEN
  3. ARICEPT [Concomitant]
     Active Substance: DONEPEZIL HYDROCHLORIDE
  4. AMPYRA [Concomitant]
     Active Substance: DALFAMPRIDINE
     Indication: RELAPSING-REMITTING MULTIPLE SCLEROSIS
     Route: 048

REACTIONS (6)
  - Gait disturbance [Unknown]
  - Memory impairment [Unknown]
  - Road traffic accident [Recovered/Resolved]
  - Joint injury [Unknown]
  - Hip fracture [Unknown]
  - Fall [Recovered/Resolved]
